FAERS Safety Report 6574312-X (Version None)
Quarter: 2010Q1

REPORT INFORMATION
  Report Type: 
  Country: None (occurrence: None)
  Receive Date: 20100208
  Receipt Date: 20100201
  Transmission Date: 20100710
  Serious: Yes (Hospitalization)
  Sender: FDA-Public Use
  Company Number: US-BAYER-200917349BCC

PATIENT
  Age: 69 Year
  Sex: Female

DRUGS (3)
  1. ASPIRIN [Suspect]
     Indication: HEADACHE
     Dosage: TOTAL DAILY DOSE: 0.5 DF  UNIT DOSE: 0.5 DF
     Route: 048
     Dates: start: 19900101, end: 19900101
  2. ASPIRIN [Suspect]
     Route: 065
     Dates: start: 19900101, end: 19900101
  3. METFORMIN HCL [Concomitant]
     Route: 065

REACTIONS (8)
  - ASTHENIA [None]
  - BLOOD PRESSURE IMMEASURABLE [None]
  - CONFUSIONAL STATE [None]
  - DRUG HYPERSENSITIVITY [None]
  - HYPERINSULINAEMIA [None]
  - LOSS OF CONSCIOUSNESS [None]
  - PULSE ABSENT [None]
  - VOMITING [None]
